FAERS Safety Report 11613844 (Version 1)
Quarter: 2015Q4

REPORT INFORMATION
  Report Type: Spontaneous
  Country: US (occurrence: US)
  Receive Date: 20151008
  Receipt Date: 20151008
  Transmission Date: 20160304
  Serious: Yes (Death)
  Sender: FDA-Public Use
  Company Number: US-INCYTE CORPORATION-2015IN005073

PATIENT
  Age: 78 Year
  Sex: Male
  Weight: 77 kg

DRUGS (7)
  1. JAKAFI [Suspect]
     Active Substance: RUXOLITINIB
     Indication: MYELOFIBROSIS
     Dosage: 25 MG, BID
     Route: 048
     Dates: start: 20150209
  2. PRILOSEC [Concomitant]
     Active Substance: OMEPRAZOLE MAGNESIUM
  3. FLOMAX [Concomitant]
     Active Substance: TAMSULOSIN HYDROCHLORIDE
  4. LEVOTHYROXINE. [Concomitant]
     Active Substance: LEVOTHYROXINE
  5. ADVIL [Concomitant]
     Active Substance: IBUPROFEN
  6. CALCIUM [Concomitant]
     Active Substance: CALCIUM
  7. HYDROXYUREA. [Concomitant]
     Active Substance: HYDROXYUREA

REACTIONS (1)
  - Death [Fatal]

NARRATIVE: CASE EVENT DATE: 20150914
